FAERS Safety Report 6476668-5 (Version None)
Quarter: 2009Q4

REPORT INFORMATION
  Report Type: 
  Country: None (occurrence: None)
  Receive Date: 20091119
  Receipt Date: 20090819
  Transmission Date: 20100525
  Serious: Yes (Other)
  Sender: FDA-Public Use
  Company Number: 2009SP021229

PATIENT
  Sex: Female
  Weight: 69.8 kg

DRUGS (2)
  1. IMPLANON [Suspect]
     Indication: CONTRACEPTION
     Dosage: 68 MG;SC
     Route: 058
     Dates: start: 20090730, end: 20090803
  2. LIDOCANE [Concomitant]

REACTIONS (5)
  - DIZZINESS [None]
  - HYPOAESTHESIA [None]
  - IMPLANT SITE PRURITUS [None]
  - LETHARGY [None]
  - MYALGIA [None]
